FAERS Safety Report 19453301 (Version 5)
Quarter: 2021Q3

REPORT INFORMATION
  Report Type: Report from Study
  Country: GB (occurrence: GB)
  Receive Date: 20210623
  Receipt Date: 20210810
  Transmission Date: 20211014
  Serious: Yes (Other)
  Sender: FDA-Public Use
  Company Number: GB-GW PHARMA-202106GBGW02954

PATIENT

DRUGS (11)
  1. EPIDYOLEX [Suspect]
     Active Substance: CANNABIDIOL
     Dosage: ABLE TO INCREASE THE DOSE OF EPIDYOLEX FURTHER
     Route: 048
     Dates: start: 2020, end: 2020
  2. CLOBAZAM. [Suspect]
     Active Substance: CLOBAZAM
     Dosage: 750 MILLIGRAM, QD (2.5 MG EVERY 1 DAY AND 2.5 MG EVERY 12 HOURS)
     Route: 065
     Dates: start: 20200611
  3. CLOBAZAM. [Suspect]
     Active Substance: CLOBAZAM
     Dosage: DOSE DECREASED
     Route: 065
  4. PHENOBARBITONE [PHENOBARBITAL] [Suspect]
     Active Substance: PHENOBARBITAL
     Indication: PRODUCT USED FOR UNKNOWN INDICATION
     Dosage: 54 MILLIGRAM, BID
     Route: 065
     Dates: start: 2019, end: 2020
  5. PHENOBARBITONE [PHENOBARBITAL] [Suspect]
     Active Substance: PHENOBARBITAL
     Dosage: REDUCED/WEANED AND STOPPED
     Route: 065
     Dates: start: 2020, end: 202103
  6. CLOBAZAM. [Suspect]
     Active Substance: CLOBAZAM
     Indication: PRODUCT USED FOR UNKNOWN INDICATION
     Dosage: 750 MILLIGRAM, QD (2.5 MG EVERY 1 DAY AND 2.5 MG EVERY 12 HOURS)
     Route: 065
     Dates: end: 20200610
  7. PHENOBARBITONE [PHENOBARBITAL] [Suspect]
     Active Substance: PHENOBARBITAL
     Dosage: 54 MILLIGRAM, QD
     Dates: start: 2020, end: 2020
  8. LEVETIRACETAM. [Concomitant]
     Active Substance: LEVETIRACETAM
     Indication: PRODUCT USED FOR UNKNOWN INDICATION
     Dosage: 460 MILLIGRAM
     Route: 065
  9. LEVETIRACETAM. [Concomitant]
     Active Substance: LEVETIRACETAM
     Dosage: 40 MG/KG/DAY, 920 MILLIGRAM, QD
     Route: 048
  10. EPIDYOLEX [Suspect]
     Active Substance: CANNABIDIOL
     Indication: SEVERE MYOCLONIC EPILEPSY OF INFANCY
     Dosage: 13.04 MG/KG/DAY, 300 MILLIGRAM, QD
     Route: 048
     Dates: start: 20200508, end: 2020
  11. EPIDYOLEX [Suspect]
     Active Substance: CANNABIDIOL
     Dosage: 15 MILLIGRAM/KILOGRAM/DAY, 345 MILLIGRAM QD (MAXIMUM DOSE)
     Route: 048
     Dates: start: 2020

REACTIONS (1)
  - Sedation [Recovered/Resolved]

NARRATIVE: CASE EVENT DATE: 20200522
